FAERS Safety Report 12862085 (Version 1)
Quarter: 2016Q4

REPORT INFORMATION
  Report Type: Spontaneous
  Country: US (occurrence: US)
  Receive Date: 20161018
  Receipt Date: 20161018
  Transmission Date: 20170207
  Serious: Yes (Disabling)
  Sender: FDA-Public Use
  Company Number: None

PATIENT
  Age: 76 Year
  Sex: Male
  Weight: 76.95 kg

DRUGS (2)
  1. IBUPROFEN. [Suspect]
     Active Substance: IBUPROFEN
     Indication: PROCEDURAL PAIN
     Dosage: 200 MG 4 TIMES A DAY ORAL
     Route: 048
  2. IBUPROFEN. [Suspect]
     Active Substance: IBUPROFEN
     Indication: ENDODONTIC PROCEDURE
     Dosage: 200 MG 4 TIMES A DAY ORAL
     Route: 048

REACTIONS (2)
  - Neovascular age-related macular degeneration [None]
  - Blindness [None]

NARRATIVE: CASE EVENT DATE: 20111001
